FAERS Safety Report 4998569-1 (Version None)
Quarter: 2006Q2

REPORT INFORMATION
  Report Type: 
  Country: None (occurrence: None)
  Receive Date: 20060508
  Receipt Date: 20060427
  Transmission Date: 20061013
  Serious: Yes (Death, Life-Threatening)
  Sender: FDA-Public Use
  Company Number: HQWYE181207MAR06

PATIENT
  Age: 84 Year
  Sex: Male

DRUGS (9)
  1. MYLOTARG [Suspect]
     Indication: ACUTE MYELOID LEUKAEMIA
     Dosage: SEE IMAGE
     Route: 041
     Dates: start: 20051205, end: 20051205
  2. MYLOTARG [Suspect]
     Indication: ACUTE MYELOID LEUKAEMIA
     Dosage: SEE IMAGE
     Route: 041
     Dates: start: 20051219, end: 20051219
  3. FAMOTIDINE [Concomitant]
  4. MAG-LAX (MAGNESIUM HYDROXIDE/PARAFFIN, LIQUID) [Concomitant]
  5. DIFLUCAN [Concomitant]
  6. ROHYPNOL (FLUNITRAZEPAM) [Concomitant]
  7. LENDORM [Concomitant]
  8. DEPAS (ETIZOLAM) [Concomitant]
  9. CIPROFLOXACIN HYDROCHLORIDE [Concomitant]

REACTIONS (4)
  - EPISTAXIS [None]
  - HICCUPS [None]
  - PLATELET COUNT DECREASED [None]
  - PYREXIA [None]
